FAERS Safety Report 14660358 (Version 1)
Quarter: 2018Q1

REPORT INFORMATION
  Report Type: Spontaneous
  Country: US (occurrence: US)
  Receive Date: 20180317
  Receipt Date: 20180317
  Transmission Date: 20180509
  Serious: No
  Sender: FDA-Public Use
  Company Number: None

PATIENT
  Age: 51 Year
  Sex: Female
  Weight: 47.25 kg

DRUGS (6)
  1. CRANBERRY DO TERRA: GX ASSIST [Concomitant]
  2. AZO URINARY TRACT DEFENSE [Concomitant]
  3. ON GUARD+ [Concomitant]
  4. DDR PRIME [Concomitant]
  5. SERTRALINE [Concomitant]
     Active Substance: SERTRALINE HYDROCHLORIDE
  6. SULFAMETHOXAZOLE-TRIME 800-160 TABS [Suspect]
     Active Substance: SULFAMETHOXAZOLE\TRIMETHOPRIM
     Indication: URINARY TRACT INFECTION
     Route: 048
     Dates: start: 20180315, end: 20180315

REACTIONS (5)
  - Pain [None]
  - Nausea [None]
  - Headache [None]
  - Pain in extremity [None]
  - Muscle spasms [None]

NARRATIVE: CASE EVENT DATE: 20180315
